FAERS Safety Report 8934222 (Version 2)
Quarter: 2012Q4

REPORT INFORMATION
  Report Type: 
  Country: JP (occurrence: JP)
  Receive Date: 20121129
  Receipt Date: 20121222
  Transmission Date: 20130627
  Serious: Yes (Hospitalization)
  Sender: FDA-Public Use
  Company Number: JP-009507513-1211JPN011472

PATIENT
  Age: 69 Year
  Sex: Female
  Weight: 52 kg

DRUGS (8)
  1. JANUVIA TABLETS 50MG [Suspect]
     Indication: DIABETES MELLITUS
     Dosage: 50 mg, qd
     Route: 048
     Dates: start: 20111003, end: 20120104
  2. NOVORAPID [Concomitant]
     Indication: DIABETES MELLITUS
     Dosage: 22 units divided dose frequency under 1000 unit, qd
     Route: 058
     Dates: start: 20100408, end: 20120104
  3. METGLUCO [Concomitant]
     Indication: DIABETES MELLITUS
     Dosage: 1000 mg, UNK
     Route: 048
     Dates: start: 20110523, end: 20120104
  4. AMARYL [Concomitant]
     Indication: DIABETES MELLITUS
     Dosage: 3 mg, UNK
     Route: 048
     Dates: end: 20120104
  5. ACTOS [Concomitant]
     Indication: DIABETES MELLITUS
     Dosage: 15 mg, UNK
     Route: 048
     Dates: end: 20120104
  6. OLMETEC [Concomitant]
     Indication: HYPERTENSION
     Dosage: 20 mg, UNK
     Route: 048
     Dates: start: 20100624, end: 20120104
  7. ATELEC [Concomitant]
     Indication: HYPERTENSION
     Dosage: 10 mg, bid
     Route: 048
     Dates: end: 20120104
  8. CARDENALIN [Concomitant]
     Indication: HYPERTENSION
     Dosage: 2 mg, UNK
     Route: 048
     Dates: end: 20120104

REACTIONS (1)
  - Pancreatic carcinoma [Recovering/Resolving]
